FAERS Safety Report 5068502-5 (Version None)
Quarter: 2006Q3

REPORT INFORMATION
  Report Type: 
  Country: None (occurrence: None)
  Receive Date: 20060802
  Receipt Date: 20051027
  Transmission Date: 20061208
  Serious: No
  Sender: FDA-Public Use
  Company Number: US-BRISTOL-MYERS SQUIBB COMPANY-13159363

PATIENT
  Age: 84 Year
  Sex: Female
  Weight: 43 kg

DRUGS (7)
  1. COUMADIN [Suspect]
     Indication: THROMBOSIS
  2. LORAZEPAM [Concomitant]
  3. HYDROXYUREA [Concomitant]
  4. LAMICTAL [Concomitant]
  5. ALLOPURINOL [Concomitant]
  6. MULTI-VITAMIN [Concomitant]
  7. BENICAR [Concomitant]

REACTIONS (2)
  - DIZZINESS [None]
  - HEADACHE [None]
